FAERS Safety Report 7905214-1 (Version None)
Quarter: 2011Q4

REPORT INFORMATION
  Report Type: 
  Country: None (occurrence: None)
  Receive Date: 20111109
  Receipt Date: 20111027
  Transmission Date: 20120403
  Serious: Yes (Hospitalization)
  Sender: FDA-Public Use
  Company Number: GB-ELI_LILLY_AND_COMPANY-GB201109002291

PATIENT
  Sex: Male

DRUGS (3)
  1. ZYPREXA [Suspect]
     Dosage: UNK
     Dates: end: 20110808
  2. SINEMET [Concomitant]
     Indication: PARKINSON'S DISEASE
     Dosage: UNK
  3. LITHIUM [Concomitant]
     Indication: MENTAL DISORDER
     Dosage: UNK

REACTIONS (9)
  - DEPRESSION [None]
  - ADVERSE REACTION [None]
  - AGITATION [None]
  - HEADACHE [None]
  - WEIGHT INCREASED [None]
  - ANXIETY [None]
  - WITHDRAWAL SYNDROME [None]
  - POTENTIATING DRUG INTERACTION [None]
  - INSOMNIA [None]
